FAERS Safety Report 7787120-9 (Version None)
Quarter: 2011Q3

REPORT INFORMATION
  Report Type: 
  Country: None (occurrence: None)
  Receive Date: 20110929
  Receipt Date: 20110922
  Transmission Date: 20111222
  Serious: Yes (Hospitalization)
  Sender: FDA-Public Use
  Company Number: CN-SANOFI-AVENTIS-2011SA061779

PATIENT
  Age: 70 Year
  Sex: Female
  Weight: 60 kg

DRUGS (5)
  1. PLAVIX [Suspect]
     Indication: THROMBOSIS PROPHYLAXIS
     Route: 048
     Dates: start: 20110101
  2. PLAVIX [Suspect]
     Indication: PERCUTANEOUS CORONARY INTERVENTION
     Route: 048
     Dates: start: 20110101
  3. BETALOC [Concomitant]
     Indication: HYPERTENSION
     Dosage: DOSE:2 UNIT(S)
     Route: 048
     Dates: start: 20110101
  4. ASPIRIN [Concomitant]
     Indication: THROMBOSIS PROPHYLAXIS
     Dosage: DOSE:4 UNIT(S)
     Route: 048
     Dates: start: 20110101
  5. NIFEDIPINE [Concomitant]
     Indication: HYPERTENSION
     Dosage: DOSE:2 UNIT(S)
     Route: 048
     Dates: start: 20110101

REACTIONS (3)
  - ABDOMINAL DISTENSION [None]
  - VOMITING [None]
  - INTESTINAL OBSTRUCTION [None]
